FAERS Safety Report 10208316 (Version 1)
Quarter: 2014Q2

REPORT INFORMATION
  Report Type: Spontaneous
  Country: US (occurrence: None)
  Receive Date: 20140529
  Receipt Date: 20140529
  Transmission Date: 20141212
  Serious: Yes (Other)
  Sender: FDA-Public Use
  Company Number: None

PATIENT
  Age: 51 Year
  Sex: Male

DRUGS (2)
  1. DULOXETINE [Suspect]
     Indication: DEPRESSION
     Dates: start: 201402, end: 20140319
  2. DULOXETINE [Suspect]
     Indication: ANXIETY
     Dates: start: 201402, end: 20140319

REACTIONS (2)
  - Drug effect decreased [None]
  - Product substitution issue [None]
